FAERS Safety Report 11280036 (Version 1)
Quarter: 2015Q3

REPORT INFORMATION
  Report Type: Spontaneous
  Country: US (occurrence: US)
  Receive Date: 20150717
  Receipt Date: 20150717
  Transmission Date: 20151125
  Serious: No
  Sender: FDA-Public Use
  Company Number: US-GALDERMA-US15002632

PATIENT
  Age: 45 Year
  Sex: Female

DRUGS (1)
  1. SOOLANTRA [Suspect]
     Active Substance: IVERMECTIN
     Indication: ROSACEA
     Route: 061
     Dates: start: 2015

REACTIONS (4)
  - Rosacea [Unknown]
  - Erythema [Unknown]
  - Dermatitis allergic [Unknown]
  - Rash papular [Unknown]

NARRATIVE: CASE EVENT DATE: 2015
